FAERS Safety Report 12084983 (Version 1)
Quarter: 2016Q1

REPORT INFORMATION
  Report Type: Spontaneous
  Country: US (occurrence: US)
  Receive Date: 20160217
  Receipt Date: 20160217
  Transmission Date: 20160526
  Serious: No
  Sender: FDA-Public Use
  Company Number: US-PERRIGO-15US013677

PATIENT
  Sex: Female

DRUGS (1)
  1. TRETINOIN. [Suspect]
     Active Substance: TRETINOIN
     Indication: SKIN WRINKLING
     Dosage: UNK, NIGHTLY
     Route: 061
     Dates: start: 201512

REACTIONS (2)
  - Application site dryness [Unknown]
  - Skin wrinkling [Unknown]

NARRATIVE: CASE EVENT DATE: 201512
